FAERS Safety Report 21767118 (Version 1)
Quarter: 2022Q4

REPORT INFORMATION
  Report Type: Spontaneous
  Country: US (occurrence: None)
  Receive Date: 20221222
  Receipt Date: 20221222
  Transmission Date: 20230113
  Serious: Yes (Other)
  Sender: FDA-Public Use
  Company Number: None

PATIENT
  Age: 51 Year
  Sex: Female

DRUGS (1)
  1. LUSPATERCEPT [Suspect]
     Active Substance: LUSPATERCEPT
     Indication: Thalassaemia
     Dates: start: 20130301, end: 20150301

REACTIONS (3)
  - Pain [None]
  - Asthenia [None]
  - Extramedullary haemopoiesis [None]

NARRATIVE: CASE EVENT DATE: 20150301
